FAERS Safety Report 7542232-X (Version None)
Quarter: 2011Q2

REPORT INFORMATION
  Report Type: 
  Country: None (occurrence: None)
  Receive Date: 20110613
  Receipt Date: 20110609
  Transmission Date: 20111010
  Serious: Yes (Death)
  Sender: FDA-Public Use
  Company Number: EG-PFIZER INC-2011125945

PATIENT

DRUGS (1)
  1. CEFOBID [Suspect]

REACTIONS (1)
  - ANAPHYLACTIC SHOCK [None]
